FAERS Safety Report 5035372-0 (Version None)
Quarter: 2006Q2

REPORT INFORMATION
  Report Type: 
  Country: None (occurrence: None)
  Receive Date: 20060519
  Receipt Date: 20060223
  Transmission Date: 20061013
  Serious: No
  Sender: FDA-Public Use
  Company Number: TPA2006A00330

PATIENT
  Age: 48 Year
  Sex: Female
  Weight: 62.5964 kg

DRUGS (3)
  1. ROZEREM [Suspect]
     Indication: INSOMNIA
     Dosage: 8 MG, QHS, PER ORAL
     Route: 048
     Dates: start: 20060217, end: 20060219
  2. NEXIUM [Concomitant]
  3. UNKNOWN MULTIVITAMINS (ERGOCALCIFEROL, ASCORBIC ACID, FOLIC ACID, THIA [Concomitant]

REACTIONS (4)
  - CENTRAL NERVOUS SYSTEM STIMULATION [None]
  - DRUG INEFFECTIVE [None]
  - INSOMNIA [None]
  - MIDDLE INSOMNIA [None]
